FAERS Safety Report 8460636 (Version 3)
Quarter: 2013Q1

REPORT INFORMATION
  Report Type: Spontaneous
  Country: US (occurrence: US)
  Receive Date: 20120315
  Receipt Date: 20130213
  Transmission Date: 20140127
  Serious: Yes (Other)
  Sender: FDA-Public Use
  Company Number: US-SHIONOGI, INC-2012000101

PATIENT
  Sex: 0

DRUGS (3)
  1. KAPVAY [Suspect]
     Indication: ATTENTION DEFICIT/HYPERACTIVITY DISORDER
     Dosage: 0.1 MG, BID
     Dates: start: 201111, end: 20111212
  2. CONCERTA [Concomitant]
     Dosage: 54 MG, EVERY MORNING
     Dates: start: 20111101, end: 20121212
  3. RITALIN [Concomitant]
     Dosage: 5 TO 10 MG QD AT 3 PM
     Dates: start: 201103

REACTIONS (5)
  - Syncope [Recovered/Resolved]
  - Fall [Recovered/Resolved]
  - Excessive eye blinking [Recovered/Resolved]
  - Headache [Recovered/Resolved]
  - Somnolence [Recovered/Resolved]
